FAERS Safety Report 7881793-8 (Version None)
Quarter: 2011Q4

REPORT INFORMATION
  Report Type: 
  Country: None (occurrence: None)
  Receive Date: 20111101
  Receipt Date: 20110531
  Transmission Date: 20120403
  Serious: No
  Sender: FDA-Public Use
  Company Number: US-AMGEN-USASP2011027986

PATIENT
  Age: 25 Year
  Sex: Female

DRUGS (3)
  1. YAZ                                /01502501/ [Concomitant]
  2. ENBREL [Suspect]
     Indication: PRODUCT USED FOR UNKNOWN INDICATION
     Dosage: 50 MG, QWK
  3. NAPROXEN [Concomitant]
     Dosage: 250 MG, UNK

REACTIONS (1)
  - CELLULITIS [None]
